FAERS Safety Report 5136447-8 (Version None)
Quarter: 2006Q4

REPORT INFORMATION
  Report Type: 
  Country: None (occurrence: None)
  Receive Date: 20061027
  Receipt Date: 20060502
  Transmission Date: 20070319
  Serious: No
  Sender: FDA-Public Use
  Company Number: US-BRISTOL-MYERS SQUIBB COMPANY-13396502

PATIENT
  Age: 73 Year
  Sex: Male

DRUGS (3)
  1. KENALOG-40 [Suspect]
     Indication: DIABETIC RETINAL OEDEMA
     Route: 031
     Dates: start: 20060421, end: 20060421
  2. NPH INSULIN [Concomitant]
  3. ASPIRIN [Concomitant]

REACTIONS (2)
  - EYE INFLAMMATION [None]
  - VISION BLURRED [None]
